FAERS Safety Report 14876327 (Version 1)
Quarter: 2018Q2

REPORT INFORMATION
  Report Type: Spontaneous
  Country: ES (occurrence: ES)
  Receive Date: 20180510
  Receipt Date: 20180510
  Transmission Date: 20180711
  Serious: Yes (Other)
  Sender: FDA-Public Use
  Company Number: ES-TEVA-2018-ES-891699

PATIENT
  Age: 85 Year
  Sex: Male
  Weight: 89.5 kg

DRUGS (1)
  1. MOXIFLOXACINO (1119A) [Suspect]
     Active Substance: MOXIFLOXACIN HYDROCHLORIDE
     Indication: WHEEZING
     Dosage: 400 MILLIGRAM DAILY;
     Route: 065
     Dates: start: 20180216

REACTIONS (2)
  - Dermatitis bullous [Recovered/Resolved]
  - Rash macular [Recovering/Resolving]

NARRATIVE: CASE EVENT DATE: 201802
